FAERS Safety Report 8382162-7 (Version None)
Quarter: 2012Q2

REPORT INFORMATION
  Report Type: 
  Country: None (occurrence: None)
  Receive Date: 20120501
  Receipt Date: 20120426
  Transmission Date: 20120825
  Serious: Yes (Hospitalization)
  Sender: FDA-Public Use
  Company Number: 2012032153

PATIENT
  Age: 12 Year
  Sex: Female
  Weight: 48.0813 kg

DRUGS (5)
  1. SODIUIM CHLORIDE (SODIUM CHLORIDE) [Concomitant]
  2. CINRYZE [Concomitant]
  3. BERINERT [Suspect]
     Indication: HEREDITARY ANGIOEDEMA
     Dosage: 1000 IU PRN, 20 ML PRN AT RATE OF 4 ML PER MINUTE, INTRAVENOUS
     Route: 042
     Dates: start: 20100920
  4. TRAZODONE HCL [Concomitant]
  5. PROZAC [Concomitant]

REACTIONS (1)
  - PHARYNGEAL DISORDER [None]
